FAERS Safety Report 5191625-7 (Version None)
Quarter: 2006Q4

REPORT INFORMATION
  Report Type: 
  Country: None (occurrence: None)
  Receive Date: 20061219
  Receipt Date: 20061207
  Transmission Date: 20070319
  Serious: Yes (Hospitalization)
  Sender: FDA-Public Use
  Company Number: 2006136193

PATIENT
  Age: 54 Year
  Sex: Female

DRUGS (1)
  1. DOSTINEX [Suspect]
     Indication: HYPERPROLACTINAEMIA
     Dosage: 0.5 MG (0.5 MG, 2 IN 1 WK), ORAL
     Route: 048
     Dates: start: 20050101, end: 20060924

REACTIONS (1)
  - BLOOD GROWTH HORMONE ABNORMAL [None]
